FAERS Safety Report 19890356 (Version 1)
Quarter: 2021Q3

REPORT INFORMATION
  Report Type: Report from Study
  Country: US (occurrence: US)
  Receive Date: 20210928
  Receipt Date: 20210928
  Transmission Date: 20211014
  Serious: Yes (Death, Hospitalization)
  Sender: FDA-Public Use
  Company Number: US-ROCHE-2919001

PATIENT
  Age: 53 Year
  Sex: Female
  Weight: 83.8 kg

DRUGS (4)
  1. PACLITAXEL. [Suspect]
     Active Substance: PACLITAXEL
     Indication: BREAST CANCER METASTATIC
     Dosage: ON 02/JUL/2021, THE PATIENT RECEIVED MOST RECENT DOSE OF PACLITAXEL PRIOR TO SERIOUS ADVERSE EVENT O
     Route: 042
     Dates: start: 20210326, end: 20210702
  2. BLINDED ATEZOLIZUMAB [Suspect]
     Active Substance: ATEZOLIZUMAB
     Indication: BREAST CANCER METASTATIC
     Dosage: ON 18?JUN?2021, THE PATIENT RECEIVED MOST RECENT DOSE OF BLINDED ATEZOLIZUMAB PRIOR TO SERIOUS ADVER
     Route: 042
     Dates: start: 20210326, end: 20210618
  3. PERTUZUMAB. [Suspect]
     Active Substance: PERTUZUMAB
     Indication: BREAST CANCER METASTATIC
     Dosage: ON 18/JUN/2021, THE PATIENT RECEIVED MOST RECENT DOSE OF PERTUZUMAB PRIOR TO SERIOUS ADVERSE EVENT O
     Route: 042
     Dates: start: 20210326
  4. TRASTUZUMAB. [Suspect]
     Active Substance: TRASTUZUMAB
     Indication: BREAST CANCER METASTATIC
     Dosage: ON 18/JUN/2021, THE PATIENT RECEIVED MOST RECENT DOSE OF TRASTUZUMAB PRIOR TO SERIOUS ADVERSE EVENT
     Route: 042
     Dates: start: 20210326

REACTIONS (5)
  - Colitis [Recovered/Resolved]
  - Sudden death [Fatal]
  - Diarrhoea [Recovered/Resolved]
  - Hypokalaemia [Recovered/Resolved]
  - Pyrexia [Recovered/Resolved]

NARRATIVE: CASE EVENT DATE: 20210522
